FAERS Safety Report 6874199-1 (Version None)
Quarter: 2010Q3

REPORT INFORMATION
  Report Type: 
  Country: None (occurrence: None)
  Receive Date: 20100723
  Receipt Date: 20090429
  Transmission Date: 20110219
  Serious: No
  Sender: FDA-Public Use
  Company Number: US-PFIZER INC-2009209317

PATIENT
  Sex: Female
  Weight: 81.646 kg

DRUGS (9)
  1. CHANTIX [Suspect]
     Indication: SMOKING CESSATION THERAPY
     Dosage: UNK
     Dates: start: 20090309
  2. PROZAC [Concomitant]
     Dosage: UNK
  3. FOLIC ACID [Concomitant]
     Dosage: UNK
  4. LOPRESSOR [Concomitant]
     Dosage: UNK
  5. RESTORIL [Concomitant]
     Dosage: UNK
  6. XANAX [Concomitant]
     Dosage: UNK
  7. CELEBREX [Concomitant]
     Indication: ARTHRITIS
     Dosage: UNK
  8. NEURONTIN [Concomitant]
     Dosage: UNK
  9. PRILOSEC [Concomitant]

REACTIONS (4)
  - ABDOMINAL DISTENSION [None]
  - DECREASED APPETITE [None]
  - DRY MOUTH [None]
  - FLATULENCE [None]
